FAERS Safety Report 11956964 (Version 1)
Quarter: 2016Q1

REPORT INFORMATION
  Report Type: Spontaneous
  Country: US (occurrence: US)
  Receive Date: 20160126
  Receipt Date: 20160126
  Transmission Date: 20160526
  Serious: Yes (Other)
  Sender: FDA-Public Use
  Company Number: US-BAYER-2016-012163

PATIENT
  Age: 77 Year
  Sex: Male

DRUGS (1)
  1. AFRIN NO DRIP SEVERE CONGESTION [Suspect]
     Active Substance: OXYMETAZOLINE HYDROCHLORIDE
     Indication: NASAL CONGESTION
     Dosage: UNK UNK, QD (4 OR UP TO 5 TIMES A DA)Y

REACTIONS (3)
  - Product use issue [None]
  - Drug dependence [None]
  - Product use issue [Not Recovered/Not Resolved]
